FAERS Safety Report 9264490 (Version 1)
Quarter: 2013Q2

REPORT INFORMATION
  Report Type: Spontaneous
  Country: AT (occurrence: AT)
  Receive Date: 20130501
  Receipt Date: 20130501
  Transmission Date: 20140414
  Serious: Yes (Hospitalization)
  Sender: FDA-Public Use
  Company Number: PHHY2013AT040999

PATIENT
  Age: 21 Year
  Sex: Male

DRUGS (1)
  1. RISPERIDONE [Suspect]
     Indication: INTENTIONAL OVERDOSE
     Dosage: 210 MG (3 MG 70 TIMES AT ONCE)
     Route: 048
     Dates: start: 20120929, end: 20120929

REACTIONS (13)
  - Anticholinergic syndrome [Recovered/Resolved]
  - Musculoskeletal stiffness [Recovered/Resolved]
  - Muscle contractions involuntary [Recovered/Resolved]
  - Erythema [Recovered/Resolved]
  - Delirium [Recovered/Resolved]
  - Confusional state [Recovered/Resolved]
  - Acidosis [Recovered/Resolved]
  - Sinus bradycardia [Recovered/Resolved]
  - Extrasystoles [Recovered/Resolved]
  - Hyperthermia [Recovered/Resolved]
  - Sinus tachycardia [Recovered/Resolved]
  - Somnolence [Recovered/Resolved]
  - Intentional overdose [Recovered/Resolved]
